FAERS Safety Report 5635336-X (Version None)
Quarter: 2008Q1

REPORT INFORMATION
  Report Type: 
  Country: None (occurrence: None)
  Receive Date: 20080222
  Receipt Date: 20080208
  Transmission Date: 20080703
  Serious: Yes (Hospitalization)
  Sender: FDA-Public Use
  Company Number: JP-GENENTECH-246749

PATIENT
  Sex: Male

DRUGS (7)
  1. AVASTIN [Suspect]
     Indication: COLON CANCER RECURRENT
     Dosage: 5 MG/KG, QD
     Route: 041
     Dates: start: 20070814
  2. OXALIPLATIN [Suspect]
     Indication: COLON CANCER RECURRENT
     Dosage: UNK, UNKNOWN
     Route: 041
     Dates: start: 20070731
  3. LEUCOVORIN CALCIUM [Suspect]
     Indication: COLON CANCER
     Route: 041
  4. ISOVORIN [Concomitant]
     Indication: COLON CANCER RECURRENT
     Dosage: UNK, UNKNOWN
     Route: 041
  5. FOLINIC ACID [Concomitant]
     Indication: COLON CANCER
     Dosage: UNK, UNKNOWN
     Route: 041
  6. IRINOTECAN [Concomitant]
     Indication: COLON CANCER
     Dosage: UNK, UNKNOWN
     Route: 065
  7. FLUOROURACIL [Concomitant]
     Indication: COLON CANCER
     Dosage: UNK, UNKNOWN
     Route: 065

REACTIONS (3)
  - DIARRHOEA [None]
  - PYREXIA [None]
  - VOMITING [None]
